FAERS Safety Report 5053245-4 (Version None)
Quarter: 2006Q3

REPORT INFORMATION
  Report Type: 
  Country: None (occurrence: None)
  Receive Date: 20060712
  Receipt Date: 20060621
  Transmission Date: 20061208
  Serious: Yes (Other)
  Sender: FDA-Public Use
  Company Number: US200606004972

PATIENT
  Age: 90 Year
  Sex: Female

DRUGS (6)
  1. FORTEO [Suspect]
     Indication: OSTEOPOROSIS
     Dates: start: 20050101
  2. FORTEO [Suspect]
     Indication: OSTEOPOROSIS
     Dates: start: 20060619
  3. FORTEO PEN (250MCG/ML) [Concomitant]
  4. CALCIUM CARBONATE                          (CALCIUM CARBONATE) [Concomitant]
  5. VITAMINS WITH MINERALS [Concomitant]
  6. ................................ [Concomitant]

REACTIONS (5)
  - DRUG INEFFECTIVE [None]
  - HIP FRACTURE [None]
  - PAIN [None]
  - PHARMACEUTICAL PRODUCT COMPLAINT [None]
  - PRURITUS GENERALISED [None]
